FAERS Safety Report 10861902 (Version 1)
Quarter: 2015Q1

REPORT INFORMATION
  Report Type: Spontaneous
  Country: US (occurrence: US)
  Receive Date: 20150223
  Receipt Date: 20150223
  Transmission Date: 20150721
  Serious: No
  Sender: FDA-Public Use
  Company Number: US-TARO-2014TAR00311

PATIENT
  Age: 47 Year
  Sex: Female
  Weight: 77.98 kg

DRUGS (2)
  1. UNSPECIFIED VITAMINS [Concomitant]
     Dosage: UNK, 1X/DAY
  2. TOPICORT [Suspect]
     Active Substance: DESOXIMETASONE
     Indication: DERMATITIS CONTACT
     Dosage: 1 DOSAGE UNITS, 2X/DAY
     Route: 061
     Dates: start: 201408, end: 201408

REACTIONS (3)
  - Hidradenitis [Recovered/Resolved]
  - Purulence [Recovered/Resolved]
  - Vaginal inflammation [Recovered/Resolved]

NARRATIVE: CASE EVENT DATE: 201408
